FAERS Safety Report 5048164-3 (Version None)
Quarter: 2006Q3

REPORT INFORMATION
  Report Type: 
  Country: None (occurrence: None)
  Receive Date: 20060711
  Receipt Date: 20060324
  Transmission Date: 20061208
  Serious: Yes (Hospitalization)
  Sender: FDA-Public Use
  Company Number: SI-ROCHE-441668

PATIENT
  Age: 52 Year
  Sex: Female
  Weight: 76 kg

DRUGS (2)
  1. CAPECITABINE [Suspect]
     Dosage: TWICE DAILY ON DAYS 1-14 EVERY THREE WEEKS.
     Route: 048
     Dates: start: 20060228, end: 20060313
  2. CAPECITABINE [Suspect]
     Dosage: TWICE DAILY ON DAYS 1-14 EVERY THREE WEEKS.
     Route: 048
     Dates: start: 20060404

REACTIONS (8)
  - ASTHENIA [None]
  - DIARRHOEA [None]
  - HYPOTENSION [None]
  - NAUSEA [None]
  - PALMAR-PLANTAR ERYTHRODYSAESTHESIA SYNDROME [None]
  - STOMATITIS [None]
  - VAGINAL INFLAMMATION [None]
  - WEIGHT DECREASED [None]
